FAERS Safety Report 11629294 (Version 1)
Quarter: 2015Q4

REPORT INFORMATION
  Report Type: Spontaneous
  Country: US (occurrence: None)
  Receive Date: 20151013
  Receipt Date: 20151013
  Transmission Date: 20160304
  Serious: Yes (Life-Threatening, Hospitalization)
  Sender: FDA-Public Use
  Company Number: None

PATIENT
  Age: 59 Year
  Sex: Male

DRUGS (1)
  1. CAPECITABINE 500MG TEVA [Suspect]
     Active Substance: CAPECITABINE
     Indication: COLON CANCER
     Dosage: 5 TABLETS DAILY (3AM/2PM) ORAL
     Route: 048
     Dates: start: 20150720, end: 20150919

REACTIONS (3)
  - Thrombosis [None]
  - Atrial fibrillation [None]
  - Pulmonary thrombosis [None]

NARRATIVE: CASE EVENT DATE: 20150924
